FAERS Safety Report 15431642 (Version 12)
Quarter: 2022Q3

REPORT INFORMATION
  Report Type: Report from Study
  Country: CN (occurrence: CN)
  Receive Date: 20180926
  Receipt Date: 20220823
  Transmission Date: 20221026
  Serious: Yes (Hospitalization, Other)
  Sender: FDA-Public Use
  Company Number: CN-JNJFOC-20180841317

PATIENT
  Age: 24 Year
  Sex: Male
  Weight: 60 kg

DRUGS (17)
  1. SIRTURO [Suspect]
     Active Substance: BEDAQUILINE FUMARATE
     Indication: Tuberculosis
     Route: 048
     Dates: start: 20180815, end: 20180829
  2. SIRTURO [Suspect]
     Active Substance: BEDAQUILINE FUMARATE
     Route: 048
     Dates: start: 20180829, end: 20180918
  3. SIRTURO [Suspect]
     Active Substance: BEDAQUILINE FUMARATE
     Route: 048
     Dates: start: 20180920, end: 20190131
  4. MOXIFLOXACIN [Suspect]
     Active Substance: MOXIFLOXACIN
     Indication: Tuberculosis
     Route: 048
     Dates: start: 20180815, end: 20180918
  5. MOXIFLOXACIN [Suspect]
     Active Substance: MOXIFLOXACIN
     Route: 048
     Dates: start: 20181017, end: 20191209
  6. CLOFAZIMINE [Suspect]
     Active Substance: CLOFAZIMINE
     Indication: Tuberculosis
     Route: 048
     Dates: start: 20180815, end: 20180918
  7. CLOFAZIMINE [Suspect]
     Active Substance: CLOFAZIMINE
     Route: 048
     Dates: start: 20180925, end: 20181016
  8. CLOFAZIMINE [Suspect]
     Active Substance: CLOFAZIMINE
     Route: 048
     Dates: start: 20181016, end: 20181209
  9. ETHAMBUTOL [Suspect]
     Active Substance: ETHAMBUTOL HYDROCHLORIDE
     Indication: Tuberculosis
     Route: 048
     Dates: start: 20180829, end: 20190212
  10. AMIKACIN [Suspect]
     Active Substance: AMIKACIN
     Indication: Chronic hepatitis B
     Route: 042
     Dates: start: 20180815, end: 20191209
  11. CYCLOSERINE [Suspect]
     Active Substance: CYCLOSERINE
     Indication: Chronic hepatitis B
     Route: 048
     Dates: start: 20180815, end: 20191209
  12. LINEZOLID [Suspect]
     Active Substance: LINEZOLID
     Indication: Chronic hepatitis B
     Route: 048
     Dates: start: 20190429, end: 20190531
  13. LINEZOLID [Suspect]
     Active Substance: LINEZOLID
     Route: 048
     Dates: start: 20190212, end: 20190429
  14. LINEZOLID [Suspect]
     Active Substance: LINEZOLID
     Route: 048
     Dates: start: 20180815, end: 20190212
  15. LINEZOLID [Suspect]
     Active Substance: LINEZOLID
     Route: 048
     Dates: start: 20190531
  16. ENTECAVIR [Concomitant]
     Active Substance: ENTECAVIR
     Indication: Tuberculosis
     Route: 065
     Dates: start: 20180720
  17. VITAMIN B6 [Concomitant]
     Active Substance: PYRIDOXINE HYDROCHLORIDE
     Dates: start: 20180720

REACTIONS (4)
  - Hepatotoxicity [Recovering/Resolving]
  - Electrocardiogram QT prolonged [Recovering/Resolving]
  - Off label use [Unknown]
  - Intentional product use issue [Unknown]

NARRATIVE: CASE EVENT DATE: 20180822
